FAERS Safety Report 7855084-5 (Version None)
Quarter: 2011Q4

REPORT INFORMATION
  Report Type: 
  Country: None (occurrence: None)
  Receive Date: 20111026
  Receipt Date: 20100810
  Transmission Date: 20120403
  Serious: Yes (Hospitalization)
  Sender: FDA-Public Use
  Company Number: DE-ROCHE-720618

PATIENT
  Age: 53 Year
  Sex: Female
  Weight: 67.3 kg

DRUGS (4)
  1. AVASTIN [Suspect]
     Indication: OVARIAN CANCER
     Dosage: LAST DOSE PRIOR TO THE SAE ON 5 AUG 2010.
     Route: 042
  2. DOXORUBICIN HYDROCHLORIDE [Suspect]
     Indication: OVARIAN CANCER
     Dosage: LAST DOSE PRIOR TO SAE: 05 AUGUST 2010
     Route: 042
  3. DIPIDOLOR [Concomitant]
     Dates: start: 20100809, end: 20100810
  4. TRAMADOL HYDROCHLORIDE [Concomitant]

REACTIONS (1)
  - PLEURAL EFFUSION [None]
